FAERS Safety Report 9571337 (Version 1)
Quarter: 2013Q4

REPORT INFORMATION
  Report Type: Report from Study
  Country: CA (occurrence: CA)
  Receive Date: 20131001
  Receipt Date: 20131001
  Transmission Date: 20140711
  Serious: Yes (Other)
  Sender: FDA-Public Use
  Company Number: CA-JNJFOC-20130914589

PATIENT
  Age: 57 Year
  Sex: Female
  Weight: 78 kg

DRUGS (5)
  1. REMICADE [Suspect]
     Indication: RHEUMATOID ARTHRITIS
     Route: 042
     Dates: start: 200812
  2. SYNTHROID [Concomitant]
     Route: 065
  3. PLAQUENIL [Concomitant]
     Route: 065
  4. RISEDRONATE [Concomitant]
     Route: 065
  5. NITRO [Concomitant]
     Route: 065

REACTIONS (2)
  - Polyp [Recovered/Resolved]
  - Blood urine present [Unknown]
